FAERS Safety Report 8421708-7 (Version None)
Quarter: 2012Q2

REPORT INFORMATION
  Report Type: 
  Country: None (occurrence: None)
  Receive Date: 20120608
  Receipt Date: 20111115
  Transmission Date: 20120825
  Serious: No
  Sender: FDA-Public Use
  Company Number: US-GLAXOSMITHKLINE-A0953120A

PATIENT
  Age: 82 Year
  Sex: Female

DRUGS (5)
  1. ASPIRIN [Concomitant]
  2. QUINAPRIL [Concomitant]
  3. CALCIUM [Concomitant]
  4. VITAMIN D [Concomitant]
  5. ALTABAX [Suspect]
     Indication: STAPHYLOCOCCAL INFECTION
     Route: 061

REACTIONS (2)
  - LIP DRY [None]
  - SKIN WRINKLING [None]
